FAERS Safety Report 9131011 (Version 1)
Quarter: 2013Q1

REPORT INFORMATION
  Report Type: Spontaneous
  Country: FR (occurrence: FR)
  Receive Date: 20130301
  Receipt Date: 20130301
  Transmission Date: 20140127
  Serious: Yes (Hospitalization)
  Sender: FDA-Public Use
  Company Number: FR-BRISTOL-MYERS SQUIBB COMPANY-17402876

PATIENT
  Age: 65 Year
  Sex: Male

DRUGS (4)
  1. REYATAZ CAPS 300 MG [Suspect]
     Indication: HIV INFECTION
     Dosage: 18-JAN-2013
     Dates: start: 20040724, end: 20130118
  2. VIDEX [Suspect]
     Indication: HIV INFECTION
     Dosage: 18-JAN-2013
     Route: 048
     Dates: start: 19981118
  3. NORVIR [Suspect]
     Indication: HIV INFECTION
     Dosage: 18-JAN-2013
     Dates: start: 20010602
  4. EPIVIR [Suspect]
     Indication: HIV INFECTION
     Dosage: 18-JAN-2013
     Route: 048
     Dates: start: 19981118

REACTIONS (1)
  - Cholecystitis acute [Recovered/Resolved with Sequelae]
